FAERS Safety Report 4456738-3 (Version None)
Quarter: 2004Q3

REPORT INFORMATION
  Report Type: 
  Country: None (occurrence: None)
  Receive Date: 20040923
  Receipt Date: 20040915
  Transmission Date: 20050211
  Serious: Yes (Death, Life-Threatening)
  Sender: FDA-Public Use
  Company Number: JP-JNJFOC-20040905786

PATIENT
  Sex: Male

DRUGS (12)
  1. FENTANYL [Suspect]
     Indication: CANCER PAIN
     Route: 062
  2. PANCREATIC ENZYME [Concomitant]
     Route: 049
  3. MOSAPRIDE CITRATE [Concomitant]
     Route: 049
  4. MAGNESIUM OXIDE [Concomitant]
     Indication: CONSTIPATION
     Route: 049
  5. ACLATONIUM NAPADISILATE [Concomitant]
     Route: 049
  6. HOCHU-EKKI [Concomitant]
     Route: 049
  7. RANITIDINE HYDROCHLORIDE [Concomitant]
     Route: 049
  8. METOCLOPRAMIDE [Concomitant]
     Indication: VOMITING
  9. CATAPLASMATA [Concomitant]
  10. MORPHINE HYDROCHLORIDE [Concomitant]
     Route: 054
  11. NAFAMOSTAT MESILATE [Concomitant]
  12. TEGAFUR [Concomitant]
     Route: 049

REACTIONS (9)
  - ALANINE AMINOTRANSFERASE INCREASED [None]
  - ANAEMIA [None]
  - ASPARTATE AMINOTRANSFERASE INCREASED [None]
  - BLOOD ALKALINE PHOSPHATASE INCREASED [None]
  - CONDITION AGGRAVATED [None]
  - DISSEMINATED INTRAVASCULAR COAGULATION [None]
  - GLUCOSE TOLERANCE IMPAIRED [None]
  - MALIGNANT NEOPLASM PROGRESSION [None]
  - MULTI-ORGAN FAILURE [None]
